FAERS Safety Report 5105657-8 (Version None)
Quarter: 2006Q3

REPORT INFORMATION
  Report Type: 
  Country: None (occurrence: None)
  Receive Date: 20060731
  Receipt Date: 20060502
  Transmission Date: 20061208
  Serious: Yes (Death)
  Sender: FDA-Public Use
  Company Number: US-JNJFOC-20060402870

PATIENT
  Age: 25 Year
  Sex: Male

DRUGS (4)
  1. RISPERDAL [Suspect]
     Indication: PSYCHOTIC DISORDER
     Dosage: 3 MG, 2 IN 1 DAY, ORAL
     Route: 048
     Dates: start: 20060120
  2. SEROQUEL (QUETIPAINE FUMARATE) [Concomitant]
  3. ZOLOFT [Concomitant]
  4. DEPAKOTE ER [Concomitant]

REACTIONS (1)
  - COMPLETED SUICIDE [None]
